FAERS Safety Report 23850548 (Version 1)
Quarter: 2024Q2

REPORT INFORMATION
  Report Type: Spontaneous
  Country: CN (occurrence: CN)
  Receive Date: 20240513
  Receipt Date: 20240513
  Transmission Date: 20240716
  Serious: Yes (Other)
  Sender: FDA-Public Use
  Company Number: CN-SEATTLE GENETICS-2024SGN05311

PATIENT
  Age: 65 Year
  Sex: Male

DRUGS (3)
  1. ADCETRIS [Suspect]
     Active Substance: BRENTUXIMAB VEDOTIN
     Indication: Angioimmunoblastic T-cell lymphoma
     Dosage: UNK
     Route: 065
     Dates: start: 20221202
  2. GEMCITABINE [Suspect]
     Active Substance: GEMCITABINE
     Indication: Angioimmunoblastic T-cell lymphoma
     Dosage: 2 UNK
     Route: 065
     Dates: start: 20221202
  3. RITUXIMAB [Suspect]
     Active Substance: RITUXIMAB
     Indication: Angioimmunoblastic T-cell lymphoma
     Route: 065

REACTIONS (5)
  - Progressive multifocal leukoencephalopathy [Unknown]
  - Cytomegalovirus chorioretinitis [Unknown]
  - Cytomegalovirus infection reactivation [Unknown]
  - JC virus infection [Unknown]
  - Product use issue [Unknown]
